FAERS Safety Report 4737310-4 (Version None)
Quarter: 2005Q3

REPORT INFORMATION
  Report Type: 
  Country: None (occurrence: None)
  Receive Date: 20050808
  Receipt Date: 20050728
  Transmission Date: 20060218
  Serious: Yes (Other)
  Sender: FDA-Public Use
  Company Number: PHBS2005FR11073

PATIENT
  Age: 63 Year
  Sex: Female

DRUGS (5)
  1. METHYSERGIDE MALEATE [Suspect]
     Indication: MIGRAINE
     Dosage: 1.65 MG/DAY
  2. LORAZEPAM [Concomitant]
     Indication: DEPRESSION
     Dosage: 5 MG/DAY
  3. TAMOXIFEN [Concomitant]
     Dosage: 20 MG/DAY
  4. ESOMEPRAZOLE [Concomitant]
     Indication: GASTRITIS
     Dosage: 20 MG/DAY
  5. PRAVASTATIN [Concomitant]
     Indication: HYPERCHOLESTEROLAEMIA
     Dosage: 20 MG/DAY

REACTIONS (5)
  - ARTERIAL FIBROSIS [None]
  - ERYTHEMA [None]
  - INDURATION [None]
  - OEDEMA [None]
  - SCLERODERMA [None]
